FAERS Safety Report 6110337-6 (Version None)
Quarter: 2009Q1

REPORT INFORMATION
  Report Type: 
  Country: None (occurrence: None)
  Receive Date: 20090310
  Receipt Date: 20081017
  Transmission Date: 20090719
  Serious: Yes (Disabling, Other)
  Sender: FDA-Public Use
  Company Number: US-PFIZER INC-2008088397

PATIENT
  Sex: Male
  Weight: 91 kg

DRUGS (6)
  1. CHANTIX [Suspect]
     Indication: SMOKING CESSATION THERAPY
     Dates: start: 20080701, end: 20080101
  2. TYSABRI [Concomitant]
  3. PROVIGIL [Concomitant]
  4. METHENAMINE [Concomitant]
  5. NITROFURANTOIN [Concomitant]
  6. VITAMIN D [Concomitant]

REACTIONS (2)
  - ABASIA [None]
  - MUSCLE SPASTICITY [None]
